FAERS Safety Report 12554711 (Version 2)
Quarter: 2016Q3

REPORT INFORMATION
  Report Type: Spontaneous
  Country: FR (occurrence: FR)
  Receive Date: 20160713
  Receipt Date: 20160801
  Transmission Date: 20161109
  Serious: No
  Sender: FDA-Public Use
  Company Number: PHHY2016FR093262

PATIENT
  Age: 62 Year
  Sex: Male

DRUGS (1)
  1. RASILEZ [Suspect]
     Active Substance: ALISKIREN
     Indication: CARDIAC DISORDER
     Dosage: 150 MG, TID
     Route: 065
     Dates: end: 201605

REACTIONS (7)
  - Visual acuity reduced [Unknown]
  - Bladder disorder [Recovered/Resolved]
  - Hot flush [Recovered/Resolved]
  - Product use issue [Unknown]
  - Alopecia [Unknown]
  - Decreased appetite [Unknown]
  - Palpitations [Unknown]
